FAERS Safety Report 8140574-0 (Version None)
Quarter: 2012Q1

REPORT INFORMATION
  Report Type: 
  Country: None (occurrence: None)
  Receive Date: 20120216
  Receipt Date: 20120213
  Transmission Date: 20120608
  Serious: Yes (Other)
  Sender: FDA-Public Use
  Company Number: US-PFIZER INC-2011264021

PATIENT
  Sex: Male

DRUGS (7)
  1. FINASTERIDE [Concomitant]
     Dosage: 5 MG, 1X/DAY
     Route: 048
  2. TAMSULOSIN [Concomitant]
     Dosage: 0.4 MG, 1X/DAY
     Route: 048
  3. LOSARTAN [Concomitant]
     Dosage: 25 MG, 1X/DAY
     Route: 048
  4. SUTENT [Suspect]
     Indication: RENAL CELL CARCINOMA
     Dosage: 37.5 MG, 1X/DAY
     Route: 048
     Dates: start: 20111010
  5. COZAAR [Concomitant]
     Dosage: 25 MG, 1X/DAY
     Route: 048
  6. ACETYLSALICYLIC ACID [Concomitant]
     Dosage: 81 MG, 1X/DAY
     Route: 048
  7. ZOLPIDEM TARTRATE [Concomitant]
     Dosage: 1 TAB 1X/DAY
     Route: 048

REACTIONS (6)
  - DYSGEUSIA [None]
  - YELLOW SKIN [None]
  - HYPERTENSION [None]
  - SURGERY [None]
  - GLOSSODYNIA [None]
  - BLOOD PRESSURE FLUCTUATION [None]
